FAERS Safety Report 21598776 (Version 1)
Quarter: 2022Q4

REPORT INFORMATION
  Report Type: Spontaneous
  Country: IL (occurrence: None)
  Receive Date: 20221115
  Receipt Date: 20221115
  Transmission Date: 20230113
  Serious: Yes (Other)
  Sender: FDA-Public Use
  Company Number: IL-ROCHE-3218012

PATIENT
  Sex: Female

DRUGS (10)
  1. MABTHERA [Suspect]
     Active Substance: RITUXIMAB
     Indication: Follicular lymphoma
     Dosage: R-CHOP, R-CVP, R-BENDAMUSTINE, R-CHLORAMBUCYL, R-MAINTANANCE, R-CEP
     Route: 065
     Dates: start: 2012
  2. CYCLOPHOSPHAMIDE [Suspect]
     Active Substance: CYCLOPHOSPHAMIDE
     Indication: Follicular lymphoma
     Dosage: R-CHOP, R-CVP
     Route: 065
     Dates: start: 2012
  3. DOXORUBICIN HYDROCHLORIDE [Suspect]
     Active Substance: DOXORUBICIN HYDROCHLORIDE
     Indication: Follicular lymphoma
     Dosage: R-CHOP
     Route: 065
     Dates: start: 2012
  4. VINCRISTINE [Suspect]
     Active Substance: VINCRISTINE
     Indication: Follicular lymphoma
     Dosage: R-CHOP, R-CVP
     Route: 065
     Dates: start: 2012
  5. PREDNISOLONE [Suspect]
     Active Substance: PREDNISOLONE
     Indication: Follicular lymphoma
     Dosage: R-CHOP, R-CVP, R-CEP
     Route: 065
     Dates: start: 2012
  6. BENDAMUSTINE [Suspect]
     Active Substance: BENDAMUSTINE
     Indication: Follicular lymphoma
     Dosage: R-BENDAMUSTINE, GAZYVA-BENDAMUSTINE
     Route: 065
     Dates: start: 2014
  7. LOMUSTINE [Suspect]
     Active Substance: LOMUSTINE
     Indication: Follicular lymphoma
     Dosage: R-CEP
     Route: 065
     Dates: start: 201811
  8. CHLORAMBUCIL [Suspect]
     Active Substance: CHLORAMBUCIL
     Indication: Follicular lymphoma
     Dosage: R-CHLORAMBUCYL
     Route: 065
  9. GAZYVA [Suspect]
     Active Substance: OBINUTUZUMAB
     Indication: Follicular lymphoma
     Dosage: GAZYVA - BENDAMUSTINE
     Route: 042
  10. ETOPOSIDE [Suspect]
     Active Substance: ETOPOSIDE
     Indication: Follicular lymphoma
     Dosage: R-CEP
     Route: 065
     Dates: start: 201811

REACTIONS (1)
  - Follicular lymphoma [Unknown]
